FAERS Safety Report 25560815 (Version 2)
Quarter: 2025Q3

REPORT INFORMATION
  Report Type: Spontaneous
  Country: US (occurrence: US)
  Receive Date: 20250715
  Receipt Date: 20250826
  Transmission Date: 20251020
  Serious: No
  Sender: JOHNSON AND JOHNSON
  Company Number: US-JNJFOC-20250714693

PATIENT
  Age: 60 Year

DRUGS (1)
  1. TREMFYA [Suspect]
     Active Substance: GUSELKUMAB
     Indication: Product used for unknown indication

REACTIONS (5)
  - Product dose omission issue [Unknown]
  - Psoriasis [Unknown]
  - Needle issue [Unknown]
  - Device issue [Unknown]
  - Product leakage [Unknown]

NARRATIVE: CASE EVENT DATE: 20250706
